FAERS Safety Report 8464272-9 (Version None)
Quarter: 2012Q2

REPORT INFORMATION
  Report Type: 
  Country: None (occurrence: None)
  Receive Date: 20120625
  Receipt Date: 20120619
  Transmission Date: 20120825
  Serious: Yes (Hospitalization)
  Sender: FDA-Public Use
  Company Number: JP-PFIZER INC-2012095354

PATIENT
  Age: 40 Year
  Sex: Male
  Weight: 67 kg

DRUGS (2)
  1. GARENOXACIN MESYLATE [Suspect]
     Indication: INFECTION
     Dosage: 400 MG, 1X/DAY
     Route: 048
     Dates: start: 20120412, end: 20120416
  2. ZITHROMAX [Suspect]
     Indication: INFECTION
     Dosage: 2 G, SINGLE
     Route: 048
     Dates: start: 20120412, end: 20120412

REACTIONS (2)
  - LYMPHOCYTE STIMULATION TEST POSITIVE [None]
  - INTERSTITIAL LUNG DISEASE [None]
